FAERS Safety Report 17123747 (Version 1)
Quarter: 2019Q4

REPORT INFORMATION
  Report Type: Spontaneous
  Country: JP (occurrence: JP)
  Receive Date: 20191206
  Receipt Date: 20191206
  Transmission Date: 20200122
  Serious: No
  Sender: FDA-Public Use
  Company Number: JP-ALLERGAN-1949536US

PATIENT
  Age: 32 Year
  Sex: Female

DRUGS (1)
  1. ASENAPINE MALEATE - BP [Suspect]
     Active Substance: ASENAPINE MALEATE
     Indication: SCHIZOPHRENIA
     Route: 060

REACTIONS (4)
  - Stomatitis [Unknown]
  - Dysgeusia [Unknown]
  - Off label use [Unknown]
  - Therapeutic product effect incomplete [Unknown]
